FAERS Safety Report 14447138 (Version 3)
Quarter: 2018Q2

REPORT INFORMATION
  Report Type: Spontaneous
  Country: US (occurrence: US)
  Receive Date: 20180126
  Receipt Date: 20180515
  Transmission Date: 20180711
  Serious: Yes (Other)
  Sender: FDA-Public Use
  Company Number: US-PFIZER INC-2018030962

PATIENT
  Age: 70 Year
  Sex: Female
  Weight: 85.73 kg

DRUGS (3)
  1. XELJANZ [Suspect]
     Active Substance: TOFACITINIB CITRATE
     Indication: RHEUMATOID ARTHRITIS
     Dosage: 5 MG, UNK (TWICE)
     Route: 048
     Dates: start: 2015
  2. XELJANZ [Suspect]
     Active Substance: TOFACITINIB CITRATE
     Dosage: 10 MG, 2X/DAY
     Dates: start: 2015
  3. XELJANZ [Suspect]
     Active Substance: TOFACITINIB CITRATE
     Dosage: UNK
     Dates: start: 20180104

REACTIONS (5)
  - Periodontitis [Recovered/Resolved]
  - Weight decreased [Recovered/Resolved]
  - Tooth injury [Recovered/Resolved]
  - Prescribed overdose [Unknown]
  - Gingival recession [Recovered/Resolved]

NARRATIVE: CASE EVENT DATE: 2015
